FAERS Safety Report 6894601-9 (Version None)
Quarter: 2010Q3

REPORT INFORMATION
  Report Type: 
  Country: None (occurrence: None)
  Receive Date: 20100802
  Receipt Date: 20100722
  Transmission Date: 20110219
  Serious: Yes (Other)
  Sender: FDA-Public Use
  Company Number: FR-ASTRAZENECA-2010SE34675

PATIENT
  Age: 82 Year
  Sex: Female

DRUGS (12)
  1. NEXIUM [Suspect]
     Route: 048
     Dates: start: 20100419, end: 20100628
  2. OMEPRAZOLE [Suspect]
     Route: 048
     Dates: end: 20100419
  3. ACETAMINOPHEN [Concomitant]
     Route: 048
     Dates: start: 20100419
  4. AMITRIPTYLINE HCL [Concomitant]
     Route: 048
  5. KREDEX [Concomitant]
     Route: 048
  6. RAMIPRIL [Concomitant]
     Route: 048
  7. CITALOPRAM HYDROBROMIDE [Concomitant]
     Route: 048
     Dates: start: 20100420
  8. IMOVANE [Concomitant]
     Route: 048
     Dates: start: 20100423
  9. XANAX [Concomitant]
     Dosage: UNTIL TWO PER DAY
     Route: 048
     Dates: start: 20100505
  10. FUROSEMIDE [Concomitant]
  11. LAMALINE [Concomitant]
     Dosage: ONE TO TWO PER DAY
  12. MACROGOL [Concomitant]
     Dosage: AS REQUIRED

REACTIONS (2)
  - COLITIS COLLAGENOUS [None]
  - WEIGHT DECREASED [None]
